FAERS Safety Report 8310738-1 (Version None)
Quarter: 2012Q2

REPORT INFORMATION
  Report Type: 
  Country: None (occurrence: None)
  Receive Date: 20120425
  Receipt Date: 20120412
  Transmission Date: 20120825
  Serious: Yes (Death)
  Sender: FDA-Public Use
  Company Number: JP-ROCHE-1060231

PATIENT
  Age: 78 Year
  Sex: Male

DRUGS (3)
  1. XELODA [Suspect]
     Dosage: DOSAGE IS UNCERTAIN.
     Route: 048
     Dates: start: 20120301, end: 20120301
  2. XELODA [Suspect]
     Indication: PRODUCT USED FOR UNKNOWN INDICATION
     Dosage: DOSAGE IS UNCERTAIN.
     Route: 048
     Dates: start: 20120301, end: 20120301
  3. OXALIPLATIN [Suspect]
     Indication: PRODUCT USED FOR UNKNOWN INDICATION
     Route: 041

REACTIONS (2)
  - CARDIAC DISORDER [None]
  - DIARRHOEA [None]
